FAERS Safety Report 5024251-0 (Version None)
Quarter: 2006Q2

REPORT INFORMATION
  Report Type: 
  Country: None (occurrence: None)
  Receive Date: 20060607
  Receipt Date: 20060603
  Transmission Date: 20061013
  Serious: Yes (Hospitalization)
  Sender: FDA-Public Use
  Company Number: 223108

PATIENT
  Age: 38 Year
  Sex: Male

DRUGS (6)
  1. METALYSE (TENECTEPLASE) PWDR + SOLVENT, INJECTION SOLN, 50MG [Suspect]
     Indication: ACUTE MYOCARDIAL INFARCTION
     Dosage: 1000 IU, SINGLE, INTRAVENOUS
     Route: 042
     Dates: start: 20050423, end: 20050423
  2. ANTICOAGULANT (ANTICOAGULANT NOS) [Concomitant]
  3. BETA BLOCKERS (BETA BLOCKERS NOS) [Concomitant]
  4. AMEA/AT-1 (GENERIC COMPONENT(S) [Concomitant]
  5. HYPOLIPIDEMICS (HYPOLIPIDEMICS) [Concomitant]
  6. INOTROPIC AGENT (INOTROPIC AGENTS) [Concomitant]

REACTIONS (2)
  - CARDIOGENIC SHOCK [None]
  - VENTRICULAR FIBRILLATION [None]
